FAERS Safety Report 5709536-4 (Version None)
Quarter: 2008Q2

REPORT INFORMATION
  Report Type: 
  Country: None (occurrence: None)
  Receive Date: 20080418
  Receipt Date: 20080415
  Transmission Date: 20081010
  Serious: Yes (Hospitalization)
  Sender: FDA-Public Use
  Company Number: FR-MERCK-0804FRA00077

PATIENT
  Age: 84 Year
  Sex: Male

DRUGS (9)
  1. NOROXIN [Suspect]
     Indication: URINARY TRACT INFECTION
     Route: 048
     Dates: start: 20071214, end: 20071221
  2. FLUINDIONE [Suspect]
     Indication: PHLEBITIS
     Route: 048
     Dates: start: 20071114, end: 20071222
  3. CLOPIDOGREL BISULFATE [Concomitant]
     Indication: PHLEBITIS
     Route: 048
     Dates: start: 20071114, end: 20071222
  4. ACEBUTOLOL HYDROCHLORIDE [Concomitant]
     Route: 048
  5. HYDROCORTISONE [Concomitant]
     Indication: RHEUMATOID ARTHRITIS
     Route: 048
  6. ZOLPIDEM TARTRATE [Concomitant]
     Indication: INSOMNIA
     Route: 048
  7. PRAZEPAM [Concomitant]
     Route: 048
  8. ACETAMINOPHEN AND TRAMADOL HYDROCHLORIDE [Concomitant]
     Route: 048
  9. ACETAMINOPHEN [Concomitant]
     Route: 048

REACTIONS (3)
  - DRUG INTERACTION [None]
  - INTERNATIONAL NORMALISED RATIO INCREASED [None]
  - SUBCUTANEOUS HAEMATOMA [None]
